FAERS Safety Report 5201005-3 (Version None)
Quarter: 2007Q1

REPORT INFORMATION
  Report Type: 
  Country: None (occurrence: None)
  Receive Date: 20070108
  Receipt Date: 20061229
  Transmission Date: 20070707
  Serious: Yes (Other)
  Sender: FDA-Public Use
  Company Number: JP-JPN-A200605283

PATIENT
  Age: 67 Year
  Sex: Female
  Weight: 51 kg

DRUGS (9)
  1. PAXIL [Suspect]
     Indication: DEPRESSION
     Route: 048
     Dates: start: 20040824
  2. TOLEDOMIN [Suspect]
     Indication: DEPRESSION
     Dosage: 25MG TWICE PER DAY
     Route: 048
     Dates: start: 20060610, end: 20060614
  3. LUVOX [Suspect]
     Indication: DEPRESSION
     Dosage: 25MG TWICE PER DAY
     Route: 048
     Dates: start: 20060614, end: 20060617
  4. HORIZON [Suspect]
     Indication: DEPRESSION
     Dosage: 2MG THREE TIMES PER DAY
     Route: 048
     Dates: start: 20040829, end: 20060603
  5. HORIZON [Suspect]
     Dosage: 2MG THREE TIMES PER DAY
     Route: 048
     Dates: start: 20061104
  6. ERISPAN [Concomitant]
     Indication: DEPRESSION
     Dosage: .5MG PER DAY
     Route: 048
     Dates: start: 20060603, end: 20061104
  7. DORAL [Concomitant]
     Indication: DEPRESSION
     Dosage: 15MG PER DAY
     Route: 048
     Dates: start: 20040829, end: 20041218
  8. DORAL [Concomitant]
     Dosage: 15MG PER DAY
     Route: 048
     Dates: start: 20060526, end: 20060611
  9. DORAL [Concomitant]
     Dosage: 7.5MG PER DAY
     Route: 048
     Dates: start: 20060612, end: 20060826

REACTIONS (4)
  - AKINESIA [None]
  - ANXIETY [None]
  - PARKINSONIAN GAIT [None]
  - PARKINSONISM [None]
